FAERS Safety Report 19192356 (Version 3)
Quarter: 2021Q2

REPORT INFORMATION
  Report Type: Spontaneous
  Country: PT (occurrence: PT)
  Receive Date: 20210429
  Receipt Date: 20210629
  Transmission Date: 20210717
  Serious: Yes (Hospitalization, Other)
  Sender: FDA-Public Use
  Company Number: PT-BIOGEN-2021BI01004201

PATIENT
  Sex: Female

DRUGS (1)
  1. TYSABRI [Suspect]
     Active Substance: NATALIZUMAB
     Indication: MULTIPLE SCLEROSIS
     Route: 042

REACTIONS (3)
  - Autoimmune hepatitis [Unknown]
  - Hypersensitivity [Unknown]
  - Hepatitis toxic [Not Recovered/Not Resolved]

NARRATIVE: CASE EVENT DATE: 20210421
